FAERS Safety Report 10334159 (Version 1)
Quarter: 2014Q3

REPORT INFORMATION
  Report Type: Spontaneous
  Country: US (occurrence: None)
  Receive Date: 20140721
  Receipt Date: 20140721
  Transmission Date: 20150326
  Serious: Yes (Disabling)
  Sender: FDA-Public Use
  Company Number: None

PATIENT
  Age: 45 Year
  Sex: Female
  Weight: 83.92 kg

DRUGS (1)
  1. GILENYA [Suspect]
     Active Substance: FINGOLIMOD HYDROCHLORIDE
     Indication: RELAPSING-REMITTING MULTIPLE SCLEROSIS
     Dosage: 1  PILL ONCE DAILY TAKEN BY MOUTH
     Route: 048
     Dates: start: 20130601, end: 20140715

REACTIONS (1)
  - Hypertension [None]

NARRATIVE: CASE EVENT DATE: 20140714
